FAERS Safety Report 25193310 (Version 2)
Quarter: 2025Q2

REPORT INFORMATION
  Report Type: Report from Study
  Country: KR (occurrence: KR)
  Receive Date: 20250414
  Receipt Date: 20250423
  Transmission Date: 20250717
  Serious: Yes (Hospitalization)
  Sender: ABBVIE
  Company Number: KR-ABBVIE-6212726

PATIENT
  Age: 54 Year
  Sex: Male
  Weight: 61 kg

DRUGS (19)
  1. SKYRIZI [Suspect]
     Active Substance: RISANKIZUMAB-RZAA
     Indication: Psoriasis
     Route: 058
     Dates: start: 20230912, end: 20230912
  2. SKYRIZI [Suspect]
     Active Substance: RISANKIZUMAB-RZAA
     Route: 058
     Dates: start: 20220822, end: 20220822
  3. SKYRIZI [Suspect]
     Active Substance: RISANKIZUMAB-RZAA
     Route: 058
     Dates: start: 20230619, end: 20230619
  4. SKYRIZI [Suspect]
     Active Substance: RISANKIZUMAB-RZAA
     Route: 058
     Dates: start: 20220922, end: 20220922
  5. SKYRIZI [Suspect]
     Active Substance: RISANKIZUMAB-RZAA
     Route: 058
     Dates: start: 20230309, end: 20230309
  6. SKYRIZI [Suspect]
     Active Substance: RISANKIZUMAB-RZAA
     Route: 058
     Dates: start: 20221215, end: 20221215
  7. DEOXONE [Concomitant]
     Indication: Psoriasis
     Route: 061
     Dates: start: 20210111
  8. ELIDEL [Concomitant]
     Active Substance: PIMECROLIMUS
     Indication: Psoriasis
     Route: 061
     Dates: start: 20230309
  9. DERMATOP [Concomitant]
     Active Substance: PREDNICARBATE
     Indication: Psoriasis
     Route: 061
     Dates: start: 20230206
  10. FENOREN [Concomitant]
     Indication: Dyslipidaemia
     Dosage: FORM STRENTH- 200 MG?MICRONIZED FENOFIBRATE GRANULE 301.95  (200  AS FENOFIBRATE).
     Route: 048
     Dates: start: 201105
  11. CLOBEX [Concomitant]
     Active Substance: CLOBETASOL PROPIONATE
     Indication: Psoriasis
     Route: 061
     Dates: start: 20210111
  12. METFORMIN HYDROCHLORIDE [Concomitant]
     Active Substance: METFORMIN HYDROCHLORIDE
     Indication: Diabetes mellitus
     Dosage: FORM STRENGTH- 850 MG?METFORMIN HYDROCHLORIDE 850
     Route: 048
     Dates: start: 202105
  13. COBISK [Concomitant]
     Indication: Hypertension
     Dosage: AMLODIPINE BESYLATE 6.944  (5  AS AMLODIPINE)
     Route: 048
     Dates: start: 201105
  14. BETAMETHASONE DIPROPIONATE\CALCIPOTRIENE HYDRATE [Concomitant]
     Active Substance: BETAMETHASONE DIPROPIONATE\CALCIPOTRIENE HYDRATE
     Indication: Psoriasis
     Route: 061
     Dates: start: 20210111
  15. PROTOPIC [Concomitant]
     Active Substance: TACROLIMUS
     Indication: Psoriasis
     Route: 061
     Dates: start: 20210517
  16. DERMOTASONE MLE [Concomitant]
     Indication: Psoriasis
     Route: 061
     Dates: start: 20210426
  17. ELDOQUIN [Concomitant]
     Indication: Psoriasis
     Route: 061
     Dates: start: 20230206
  18. PIOGLE [Concomitant]
     Indication: Diabetes mellitus
     Dosage: FORM STRENGTH- 15 MG??PIOGLITAZONE HYDROCHLORIDE 16.53  (15  AS PIOGLITAZONE).
     Route: 048
     Dates: start: 202105
  19. ANATAN PLUS [Concomitant]
     Indication: Hypertension
     Dosage: CANDESARTAN CILEXETIL 16 , HYDROCHLOROTHIAZIDE 12.5
     Route: 048
     Dates: start: 201105

REACTIONS (1)
  - Nasal septum deviation [Recovered/Resolved]

NARRATIVE: CASE EVENT DATE: 20230822
